FAERS Safety Report 16544831 (Version 2)
Quarter: 2019Q3

REPORT INFORMATION
  Report Type: Report from Study
  Country: AR (occurrence: AR)
  Receive Date: 20190709
  Receipt Date: 20190724
  Transmission Date: 20191004
  Serious: No
  Sender: FDA-Public Use
  Company Number: PHHY2019AR156776

PATIENT
  Age: 53 Year
  Sex: Female

DRUGS (1)
  1. GALVUS MET [Suspect]
     Active Substance: METFORMIN HYDROCHLORIDE\VILDAGLIPTIN
     Indication: TYPE 2 DIABETES MELLITUS
     Dosage: 2 DF, QD (METFORMIN 850 MG, VILDAGLIPTIN 50 MG)
     Route: 065

REACTIONS (4)
  - Tonsillitis [Recovered/Resolved]
  - Oropharyngeal discomfort [Recovered/Resolved]
  - Nasal congestion [Recovered/Resolved]
  - Ill-defined disorder [Recovering/Resolving]

NARRATIVE: CASE EVENT DATE: 20190626
